FAERS Safety Report 13533501 (Version 1)
Quarter: 2017Q2

REPORT INFORMATION
  Report Type: Spontaneous
  Country: US (occurrence: US)
  Receive Date: 20170510
  Receipt Date: 20170510
  Transmission Date: 20170830
  Serious: Yes (Death, Other)
  Sender: FDA-Public Use
  Company Number: US-INCYTE CORPORATION-2017IN003627

PATIENT
  Age: 76 Year
  Sex: Male

DRUGS (4)
  1. 5-AZACYTIDINE [Suspect]
     Active Substance: AZACITIDINE
     Indication: PRIMARY MYELOFIBROSIS
     Dosage: UNK
     Route: 065
  2. HYDROXYCARBAMIDE [Suspect]
     Active Substance: HYDROXYUREA
     Indication: PRIMARY MYELOFIBROSIS
     Dosage: 2.5 G, QD (ON DAY 1)
     Route: 065
  3. JAKAFI [Suspect]
     Active Substance: RUXOLITINIB
     Indication: PRIMARY MYELOFIBROSIS
     Dosage: 20 MG, BID
     Route: 065
  4. ASPIRIN. [Concomitant]
     Active Substance: ASPIRIN
     Indication: PRIMARY MYELOFIBROSIS
     Dosage: UNK
     Route: 065

REACTIONS (5)
  - Thrombocytosis [Unknown]
  - Acute myeloid leukaemia [Fatal]
  - Leukocytosis [Unknown]
  - Therapy non-responder [Unknown]
  - Deep vein thrombosis [Unknown]
